FAERS Safety Report 8761928 (Version 2)
Quarter: 2013Q1

REPORT INFORMATION
  Report Type: Spontaneous
  Country: BR (occurrence: BR)
  Receive Date: 20120830
  Receipt Date: 20130315
  Transmission Date: 20140127
  Serious: Yes (Other)
  Sender: FDA-Public Use
  Company Number: CHPA2012BR018899

PATIENT
  Sex: Female

DRUGS (2)
  1. CIBALENAA [Suspect]
     Indication: HEADACHE
     Dosage: UNK, PRN
     Route: 048
  2. LEVOTIROXINA [Concomitant]
     Indication: HYPOTHYROIDISM
     Dosage: 0.175 MG, QD
     Route: 048
     Dates: start: 1997

REACTIONS (5)
  - Carpal tunnel syndrome [Recovering/Resolving]
  - Feeling of despair [Recovered/Resolved]
  - Disease recurrence [Not Recovered/Not Resolved]
  - Overdose [Unknown]
  - Incorrect dose administered [Unknown]
